FAERS Safety Report 7563411-1 (Version None)
Quarter: 2011Q2

REPORT INFORMATION
  Report Type: 
  Country: None (occurrence: None)
  Receive Date: 20110615
  Receipt Date: 20110608
  Transmission Date: 20111010
  Serious: Yes (Hospitalization)
  Sender: FDA-Public Use
  Company Number: 2009-196667-NL

PATIENT
  Age: 27 Year
  Sex: Female
  Weight: 52.1637 kg

DRUGS (2)
  1. NUVARING [Suspect]
     Indication: CONTRACEPTION
     Dates: start: 20040506, end: 20061013
  2. NUVARING [Suspect]
     Indication: LIBIDO DISORDER
     Dates: start: 20040506, end: 20061013

REACTIONS (15)
  - FAECAL INCONTINENCE [None]
  - INTRACRANIAL ANEURYSM [None]
  - HYPERCOAGULATION [None]
  - BRAIN OEDEMA [None]
  - GASTROENTERITIS [None]
  - INTRACRANIAL VENOUS SINUS THROMBOSIS [None]
  - SUBARACHNOID HAEMORRHAGE [None]
  - CEREBRAL ARTERIOVENOUS MALFORMATION HAEMORRHAGIC [None]
  - HAEMATOCRIT DECREASED [None]
  - MENINGITIS [None]
  - HEADACHE [None]
  - BRAIN INJURY [None]
  - FIBRIN D DIMER INCREASED [None]
  - DEHYDRATION [None]
  - WEIGHT DECREASED [None]
